FAERS Safety Report 5922545-5 (Version None)
Quarter: 2008Q4

REPORT INFORMATION
  Report Type: 
  Country: None (occurrence: None)
  Receive Date: 20081017
  Receipt Date: 20081009
  Transmission Date: 20090506
  Serious: Yes (Other)
  Sender: FDA-Public Use
  Company Number: PHHY2008DE24476

PATIENT
  Sex: Male

DRUGS (4)
  1. RASILEZ [Suspect]
     Indication: HYPERTENSION
     Dosage: 1 DF, QD
     Dates: start: 20080901, end: 20081001
  2. ASPIRIN [Concomitant]
     Dosage: UNK
  3. PAROXAT [Concomitant]
     Indication: DEPRESSION
  4. HOMEOPATHIC PREPARATIONS [Concomitant]
     Dosage: UNK
     Dates: start: 20080601

REACTIONS (4)
  - ANXIETY [None]
  - DEPRESSION [None]
  - NERVOUSNESS [None]
  - RESTLESSNESS [None]
